FAERS Safety Report 7712509-3 (Version None)
Quarter: 2011Q3

REPORT INFORMATION
  Report Type: 
  Country: None (occurrence: None)
  Receive Date: 20110826
  Receipt Date: 20110816
  Transmission Date: 20111222
  Serious: Yes (Hospitalization, Other)
  Sender: FDA-Public Use
  Company Number: US-ELI_LILLY_AND_COMPANY-US201106003248

PATIENT
  Sex: Female

DRUGS (7)
  1. CYMBALTA [Suspect]
     Indication: DEPRESSION
     Dosage: 60 MG, QD
     Route: 065
  2. TRIAMTERENE AND HYDROCHLOROTHIAZID [Concomitant]
     Dosage: 37.5 MG, QD
     Route: 065
  3. SULFAMETHOXAZOLE [Concomitant]
     Dosage: UNK, UNKNOWN
     Route: 065
  4. PHENAZOPYRIDINE HCL TAB [Concomitant]
     Dosage: 200 MG, TID
     Route: 065
  5. PRAMIPEXOLE DIHYDROCHLORIDE [Concomitant]
     Dosage: 0.25 MG, UNKNOWN
     Route: 065
  6. CLONAZEPAM [Concomitant]
     Dosage: 2 MG, TID
     Route: 065
  7. CITALOPRAM HYDROBROMIDE [Concomitant]
     Dosage: UNK, UNKNOWN
     Route: 065

REACTIONS (15)
  - DRUG DOSE OMISSION [None]
  - WEIGHT INCREASED [None]
  - BACK PAIN [None]
  - MEMORY IMPAIRMENT [None]
  - NON-HODGKIN'S LYMPHOMA [None]
  - HOSPITALISATION [None]
  - DEPRESSED MOOD [None]
  - VOMITING [None]
  - STOMACH MASS [None]
  - HYSTERECTOMY [None]
  - ARTHRALGIA [None]
  - PAIN IN EXTREMITY [None]
  - WITHDRAWAL SYNDROME [None]
  - URINARY TRACT INFECTION [None]
  - RESTLESS LEGS SYNDROME [None]
